FAERS Safety Report 8511142-3 (Version None)
Quarter: 2012Q2

REPORT INFORMATION
  Report Type: 
  Country: None (occurrence: None)
  Receive Date: 20120629
  Receipt Date: 20120621
  Transmission Date: 20120825
  Serious: Yes (Hospitalization)
  Sender: FDA-Public Use
  Company Number: 2011SP041013

PATIENT
  Age: 46 Year
  Sex: Male
  Weight: 101 kg

DRUGS (8)
  1. VIRAFERONPEG [Suspect]
     Indication: HEPATITIS C
     Dosage: 120 MCG;SC
     Route: 058
     Dates: start: 20110412, end: 20110726
  2. BOCEPREVIR (SCH-503034) [Suspect]
     Indication: HEPATITIS C
     Dosage: 800 MG;TID;PO
     Route: 048
     Dates: start: 20110510, end: 20110721
  3. INDAPAMIDE [Concomitant]
  4. PROPRANOLOL [Concomitant]
  5. TIEMONIUM [Concomitant]
  6. LEVOTHYROXINE SODIUM [Concomitant]
  7. REBETOL [Suspect]
     Indication: HEPATITIS C
     Dosage: 1200 MG;QD;PO 800 MG;QD;PO
     Route: 048
     Dates: start: 20110412, end: 20110721
  8. REBETOL [Suspect]
     Indication: HEPATITIS C
     Dosage: 1200 MG;QD;PO 800 MG;QD;PO
     Route: 048
     Dates: start: 20110721, end: 20110726

REACTIONS (12)
  - ANAEMIA [None]
  - HAEMOLYTIC ANAEMIA [None]
  - GOUTY ARTHRITIS [None]
  - ARTHRALGIA [None]
  - ASTHENIA [None]
  - BACK PAIN [None]
  - CHILLS [None]
  - BURSITIS [None]
  - HYPOKALAEMIA [None]
  - RENAL FAILURE [None]
  - PYREXIA [None]
  - ARTHRITIS [None]
